FAERS Safety Report 5037371-1 (Version None)
Quarter: 2006Q2

REPORT INFORMATION
  Report Type: 
  Country: None (occurrence: None)
  Receive Date: 20060605
  Receipt Date: 20060511
  Transmission Date: 20061013
  Serious: No
  Sender: FDA-Public Use
  Company Number: IND-AE-06-SAN-021

PATIENT
  Age: 91 Year
  Sex: Male

DRUGS (4)
  1. SANCTURA [Suspect]
     Indication: HYPERTONIC BLADDER
     Dosage: 20 MG - BID - ORAL
     Route: 048
  2. AMARYL [Concomitant]
  3. DIOVAN [Concomitant]
  4. NORVASC [Concomitant]

REACTIONS (1)
  - HEADACHE [None]
